FAERS Safety Report 23064972 (Version 1)
Quarter: 2023Q4

REPORT INFORMATION
  Report Type: Spontaneous
  Country: US (occurrence: None)
  Receive Date: 20231013
  Receipt Date: 20231013
  Transmission Date: 20240109
  Serious: Yes (Hospitalization)
  Sender: FDA-Public Use
  Company Number: None

PATIENT
  Age: 33 Year
  Sex: Male
  Weight: 80.25 kg

DRUGS (2)
  1. PALIPERIDONE PALMITATE [Suspect]
     Active Substance: PALIPERIDONE PALMITATE
     Dosage: FREQUENCY : DAILY;?
     Route: 048
     Dates: start: 20220928, end: 20221020
  2. PALIPERIDONE PALMITATE [Suspect]
     Active Substance: PALIPERIDONE PALMITATE
     Dosage: FREQUENCY : DAILY;?
     Route: 048

REACTIONS (2)
  - Insomnia [None]
  - Akathisia [None]

NARRATIVE: CASE EVENT DATE: 20221027
